FAERS Safety Report 8466520-8 (Version None)
Quarter: 2012Q2

REPORT INFORMATION
  Report Type: 
  Country: None (occurrence: None)
  Receive Date: 20120626
  Receipt Date: 20120620
  Transmission Date: 20120825
  Serious: Yes (Other)
  Sender: FDA-Public Use
  Company Number: JP-PFIZER INC-2012145349

PATIENT
  Age: 66 Year
  Sex: Male

DRUGS (10)
  1. ALPRAZOLAM [Suspect]
     Dosage: UNK
  2. FLUVOXAMINE MALEATE [Suspect]
     Dosage: UNK
     Dates: start: 20110901
  3. LITIOMAL [Suspect]
     Dosage: UNK
     Dates: start: 20110901
  4. SULPIRIDE [Suspect]
     Dosage: UNK
  5. ABILIT [Suspect]
     Dosage: UNK
  6. LENDORMIN [Suspect]
     Dosage: UNK
  7. PURSENNID [Suspect]
     Dosage: UNK
  8. ALPRAZOLAM [Suspect]
     Dosage: UNK
     Route: 048
  9. AMOXAPINE [Suspect]
     Dosage: UNK
     Route: 048
  10. CYMBALTA [Suspect]
     Dosage: UNK

REACTIONS (1)
  - DEVICE EXPULSION [None]
